FAERS Safety Report 21634045 (Version 4)
Quarter: 2023Q2

REPORT INFORMATION
  Report Type: Spontaneous
  Country: US (occurrence: US)
  Receive Date: 20221123
  Receipt Date: 20230622
  Transmission Date: 20230722
  Serious: Yes (Other)
  Sender: FDA-Public Use
  Company Number: US-PFIZER INC-PV202200109605

PATIENT
  Age: 27 Year
  Sex: Female

DRUGS (3)
  1. LORBRENA [Suspect]
     Active Substance: LORLATINIB
     Indication: Lung neoplasm malignant
     Dosage: 25 MG, 2X/DAY
     Route: 048
  2. LORBRENA [Suspect]
     Active Substance: LORLATINIB
     Dosage: 50 MG, DAILY
     Route: 048
  3. TEPOTINIB [Concomitant]
     Active Substance: TEPOTINIB
     Indication: Lung neoplasm malignant
     Dosage: UNK

REACTIONS (3)
  - Cerebrovascular accident [Unknown]
  - Neoplasm progression [Unknown]
  - Off label use [Unknown]
